FAERS Safety Report 18136662 (Version 1)
Quarter: 2020Q3

REPORT INFORMATION
  Report Type: Spontaneous
  Country: IR (occurrence: IR)
  Receive Date: 20200811
  Receipt Date: 20200811
  Transmission Date: 20201103
  Serious: Yes (Hospitalization)
  Sender: FDA-Public Use
  Company Number: IR-AKRON, INC.-2088481

PATIENT
  Age: 50 Year
  Sex: Male

DRUGS (2)
  1. ACETAMINOPHEN + CODEINE PHOSPHATE ORAL SOLN [Suspect]
     Active Substance: ACETAMINOPHEN\CODEINE PHOSPHATE
  2. MORPHINE SULFATE. [Suspect]
     Active Substance: MORPHINE SULFATE

REACTIONS (3)
  - Hypertension [Unknown]
  - Drug withdrawal syndrome [Unknown]
  - Hypochromic anaemia [Unknown]
